FAERS Safety Report 19857760 (Version 2)
Quarter: 2021Q3

REPORT INFORMATION
  Report Type: Spontaneous
  Country: JP (occurrence: JP)
  Receive Date: 20210921
  Receipt Date: 20210927
  Transmission Date: 20211014
  Serious: Yes (Other)
  Sender: FDA-Public Use
  Company Number: JP-ORION CORPORATION ORION PHARMA-ENTC2021-0242

PATIENT
  Age: 73 Year
  Sex: Male

DRUGS (1)
  1. STALEVO [Suspect]
     Active Substance: CARBIDOPA\ENTACAPONE\LEVODOPA
     Indication: PARKINSON^S DISEASE
     Dosage: LEVODOAP/ CARBIDOPA/ ENTACAPONE 100 MG, 1 DOSAGE FORM, 5 QD
     Route: 048

REACTIONS (2)
  - Hallucination [Unknown]
  - Drooling [Unknown]
